FAERS Safety Report 8713755 (Version 3)
Quarter: 2012Q4

REPORT INFORMATION
  Report Type: 
  Country: US (occurrence: US)
  Receive Date: 20120808
  Receipt Date: 20120907
  Transmission Date: 20130627
  Serious: Yes (Other)
  Sender: FDA-Public Use
  Company Number: US-FRI-1000037624

PATIENT
  Age: 73 Year
  Sex: Male

DRUGS (12)
  1. TEFLARO [Suspect]
     Indication: DECUBITUS ULCER
     Dosage: 600 mg every 12 hours
     Route: 042
     Dates: start: 20120731, end: 20120731
  2. TEFLARO [Suspect]
     Indication: ENTEROCOCCAL INFECTION
  3. TEFLARO [Suspect]
     Indication: WOUND INFECTION PSEUDOMONAS
  4. TEFLARO [Suspect]
     Indication: WOUND INFECTION STAPHYLOCOCCAL
  5. TEFLARO [Suspect]
     Indication: ENTEROCOCCAL BACTERAEMIA
  6. COMBIVENT [Concomitant]
  7. VITAMIN C [Concomitant]
  8. COREG [Concomitant]
  9. DOCUSATE [Concomitant]
     Dosage: 100 mg
  10. FUROSEMIDE [Concomitant]
     Dosage: 40 mg
  11. MAGNESIUM OXIDE [Concomitant]
     Dosage: 400 mg
  12. SOLUMEDROL [Concomitant]
     Dosage: 60 mg every 12 hours

REACTIONS (4)
  - Apnoea [Recovered/Resolved]
  - Dyspnoea [Recovered/Resolved]
  - Stridor [Recovered/Resolved]
  - Adverse drug reaction [Recovered/Resolved]
